FAERS Safety Report 8263926-7 (Version None)
Quarter: 2012Q2

REPORT INFORMATION
  Report Type: 
  Country: None (occurrence: None)
  Receive Date: 20120406
  Receipt Date: 20120322
  Transmission Date: 20120825
  Serious: Yes (Other)
  Sender: FDA-Public Use
  Company Number: CO-AMGEN-COLSP2012019847

PATIENT
  Age: 45 Year
  Sex: Male

DRUGS (5)
  1. XYNTHA [Interacting]
     Indication: FACTOR VIII DEFICIENCY
     Dosage: 1500 IU, THREE TIMES PER WEEK
     Dates: start: 20120227, end: 20120227
  2. FACTOR VIII, RECOMBINANT [Concomitant]
     Indication: FACTOR VIII DEFICIENCY
     Dosage: 1500 IU, THREE TIMES PER WEEK
  3. LOSARTAN POTASSIUM [Concomitant]
  4. ENBREL [Suspect]
     Indication: PSORIASIS
     Dosage: 50 MG, WEEKLY (FROM MONDAY TO FRIDAY)
  5. AMLODIPINE BESYLATE [Concomitant]
     Indication: HYPERTENSION
     Dosage: 5MG + 100MG EVERY 12 HOURS

REACTIONS (6)
  - VISION BLURRED [None]
  - RASH [None]
  - PRURITUS [None]
  - DRUG INTERACTION [None]
  - HEADACHE [None]
  - DYSPNOEA [None]
